FAERS Safety Report 22650022 (Version 1)
Quarter: 2023Q2

REPORT INFORMATION
  Report Type: Spontaneous
  Country: CN (occurrence: CN)
  Receive Date: 20230628
  Receipt Date: 20230628
  Transmission Date: 20230722
  Serious: Yes (Hospitalization, Other)
  Sender: FDA-Public Use
  Company Number: CN-PFIZER INC-202300230566

PATIENT
  Age: 32 Year
  Sex: Male

DRUGS (8)
  1. METHYLPREDNISOLONE [Suspect]
     Active Substance: METHYLPREDNISOLONE
     Indication: Erythrodermic psoriasis
     Dosage: 40 MG, DAILY
     Dates: start: 2020
  2. METHYLPREDNISOLONE [Suspect]
     Active Substance: METHYLPREDNISOLONE
     Dosage: 28 MG, DAILY
     Dates: start: 2020
  3. METHYLPREDNISOLONE [Suspect]
     Active Substance: METHYLPREDNISOLONE
     Dosage: 16 MG, DAILY
     Dates: start: 202006
  4. METHYLPREDNISOLONE [Suspect]
     Active Substance: METHYLPREDNISOLONE
     Dosage: 8 MG, DAILY
     Dates: start: 202006
  5. METHYLPREDNISOLONE [Suspect]
     Active Substance: METHYLPREDNISOLONE
     Dosage: 16 MG, DAILY
     Dates: start: 2020
  6. METHYLPREDNISOLONE [Suspect]
     Active Substance: METHYLPREDNISOLONE
     Dosage: 12 MG, DAILY
     Dates: start: 2020
  7. IXEKIZUMAB [Concomitant]
     Active Substance: IXEKIZUMAB
     Indication: Erythrodermic psoriasis
     Dosage: 160 MG AT WEEK 0, FOLLOWED BY 80 MG AT WEEKS 2, 4, AND 6.
     Route: 058
     Dates: start: 20200610
  8. ADALIMUMAB [Concomitant]
     Active Substance: ADALIMUMAB
     Indication: Erythrodermic psoriasis
     Dosage: 80 MG AT WEEK 0, 40 MG AT WEEK 1, AND 40 MG EVERY 2 WEEKS THEREAFTER
     Route: 058
     Dates: start: 20200807

REACTIONS (2)
  - Adrenal insufficiency [Unknown]
  - Adrenocortical insufficiency acute [Unknown]

NARRATIVE: CASE EVENT DATE: 20200101
